FAERS Safety Report 6705708-0 (Version None)
Quarter: 2010Q2

REPORT INFORMATION
  Report Type: 
  Country: None (occurrence: None)
  Receive Date: 20100503
  Receipt Date: 20100420
  Transmission Date: 20101027
  Serious: Yes (Other)
  Sender: FDA-Public Use
  Company Number: US-BAYER-201011776NA

PATIENT
  Age: 30 Year
  Sex: Female
  Weight: 54 kg

DRUGS (13)
  1. OCELLA [Suspect]
     Indication: CONTRACEPTION
     Route: 048
     Dates: start: 20020101, end: 20090101
  2. YASMIN [Suspect]
     Indication: CONTRACEPTION
     Route: 048
     Dates: start: 20020101, end: 20090101
  3. LORAZEPAM [Concomitant]
     Indication: DRUG USE FOR UNKNOWN INDICATION
     Route: 065
  4. NABUMETONE [Concomitant]
     Indication: DRUG USE FOR UNKNOWN INDICATION
     Route: 065
  5. PRISTIQ [Concomitant]
     Indication: DRUG USE FOR UNKNOWN INDICATION
     Route: 065
  6. LEXAPRO [Concomitant]
     Indication: DRUG USE FOR UNKNOWN INDICATION
     Route: 065
  7. KEFZOL [Concomitant]
     Indication: CHOLECYSTECTOMY
     Route: 065
     Dates: start: 20091102
  8. VERSED [Concomitant]
     Indication: CHOLECYSTECTOMY
     Route: 065
     Dates: start: 20091102
  9. FENTANYL [Concomitant]
     Indication: CHOLECYSTECTOMY
     Route: 065
     Dates: start: 20091102
  10. ZOFRAN [Concomitant]
     Indication: CHOLECYSTECTOMY
     Route: 065
     Dates: start: 20091102
  11. TORADIL [Concomitant]
     Indication: CHOLECYSTECTOMY
     Route: 065
     Dates: start: 20091102
  12. LACTATED RINGER'S [Concomitant]
     Indication: CHOLECYSTECTOMY
     Route: 065
     Dates: start: 20091102
  13. PERCOCET [Concomitant]
     Indication: CHOLECYSTECTOMY
     Route: 065
     Dates: start: 20091102

REACTIONS (11)
  - ABDOMINAL PAIN [None]
  - ABDOMINAL PAIN UPPER [None]
  - CHOLECYSTITIS CHRONIC [None]
  - CHOLELITHIASIS [None]
  - DIARRHOEA [None]
  - DISCOMFORT [None]
  - DYSPEPSIA [None]
  - LETHARGY [None]
  - NAUSEA [None]
  - VOMITING [None]
  - YELLOW SKIN [None]
